FAERS Safety Report 20046809 (Version 1)
Quarter: 2021Q4

REPORT INFORMATION
  Report Type: Spontaneous
  Country: BR (occurrence: BR)
  Receive Date: 20211109
  Receipt Date: 20211109
  Transmission Date: 20220303
  Serious: Yes (Other)
  Sender: FDA-Public Use
  Company Number: BR-SUN PHARMACEUTICAL INDUSTRIES LTD-2021R1-316527

PATIENT
  Sex: Female
  Weight: 2.1 kg

DRUGS (5)
  1. IBUPROFEN [Suspect]
     Active Substance: IBUPROFEN
     Indication: Cardiomegaly
     Dosage: UNK
     Route: 064
  2. INDOMETHACIN [Suspect]
     Active Substance: INDOMETHACIN
     Indication: Ascites
     Dosage: 100 MILLIGRAM, DAILY
     Route: 064
  3. INDOMETHACIN [Suspect]
     Active Substance: INDOMETHACIN
     Indication: Pleural effusion
     Dosage: 300 MILLIGRAM, DAILY
     Route: 064
  4. DIPYRONE [Suspect]
     Active Substance: DIPYRONE
     Indication: Product used for unknown indication
     Dosage: 3 GRAM, DAILY
     Route: 064
  5. DIPYRONE [Suspect]
     Active Substance: DIPYRONE
     Dosage: 2 GRAM, DAILY
     Route: 064

REACTIONS (5)
  - Foetal exposure during pregnancy [Unknown]
  - Premature baby [Unknown]
  - Low birth weight baby [Unknown]
  - Acidosis [Unknown]
  - Cyanosis [Unknown]
